FAERS Safety Report 21537306 (Version 1)
Quarter: 2022Q4

REPORT INFORMATION
  Report Type: Spontaneous
  Country: JP (occurrence: JP)
  Receive Date: 20221101
  Receipt Date: 20221101
  Transmission Date: 20230113
  Serious: Yes (Hospitalization, Other)
  Sender: FDA-Public Use
  Company Number: JP-MPKK-JPN202201074_P_1

PATIENT
  Age: 78 Year
  Sex: Female

DRUGS (3)
  1. NORSPAN [Suspect]
     Active Substance: BUPRENORPHINE
     Indication: Back pain
     Dosage: 5 MICROGRAM PER HOUR, WEEKLY
     Route: 062
  2. TRAMADOL [Concomitant]
     Active Substance: TRAMADOL
     Indication: Product used for unknown indication
     Dosage: UNK
     Route: 048
  3. ACETAMINOPHEN [Concomitant]
     Active Substance: ACETAMINOPHEN
     Indication: Product used for unknown indication
     Dosage: UNK
     Route: 048

REACTIONS (1)
  - Spinal compression fracture [Unknown]
